FAERS Safety Report 6925880-7 (Version None)
Quarter: 2010Q3

REPORT INFORMATION
  Report Type: 
  Country: None (occurrence: None)
  Receive Date: 20100816
  Receipt Date: 20100805
  Transmission Date: 20110219
  Serious: Yes (Death, Hospitalization, Other)
  Sender: FDA-Public Use
  Company Number: US-BAXTER-2010BH018841

PATIENT
  Sex: Male

DRUGS (1)
  1. DIANEAL [Suspect]
     Indication: PERITONEAL DIALYSIS
     Route: 033
     Dates: end: 20100708

REACTIONS (7)
  - CARDIAC ARREST [None]
  - DIZZINESS [None]
  - FALL [None]
  - HYPOTENSION [None]
  - MYOCARDIAL INFARCTION [None]
  - PERITONITIS [None]
  - SEPSIS [None]
